FAERS Safety Report 5264650-5 (Version None)
Quarter: 2007Q1

REPORT INFORMATION
  Report Type: 
  Country: None (occurrence: None)
  Receive Date: 20070314
  Receipt Date: 20070309
  Transmission Date: 20070707
  Serious: Yes (Other)
  Sender: FDA-Public Use
  Company Number: BR-JNJFOC-20061105805

PATIENT
  Age: 59 Year
  Sex: Female
  Weight: 100 kg

DRUGS (11)
  1. TOPAMAX [Suspect]
     Indication: EATING DISORDER
     Route: 048
  2. TOPAMAX [Suspect]
     Indication: DRUG THERAPY
     Route: 048
  3. TOPAMAX [Suspect]
     Indication: PAIN
     Route: 048
  4. VENLAFAXINE HCL [Concomitant]
     Indication: DEPRESSION
  5. INSULIN [Concomitant]
     Indication: DIABETES MELLITUS
  6. RIVOTRIL [Concomitant]
     Indication: DEPRESSION
  7. PROPRANOLOL [Concomitant]
     Indication: HYPERTENSION
  8. NIFEDIPINE [Concomitant]
     Indication: HYPERTENSION
  9. ENALAPRIL MALEATE [Concomitant]
     Indication: HYPERTENSION
  10. ATENSINA [Concomitant]
     Indication: HYPERTENSION
  11. CLORANA [Concomitant]
     Indication: HYPERTENSION
     Route: 048

REACTIONS (4)
  - DYSPNOEA [None]
  - FATIGUE [None]
  - MUSCLE CONTRACTIONS INVOLUNTARY [None]
  - TACHYCARDIA [None]
